FAERS Safety Report 9252191 (Version 3)
Quarter: 2013Q2

REPORT INFORMATION
  Report Type: Spontaneous
  Country: US (occurrence: US)
  Receive Date: 20130424
  Receipt Date: 20130612
  Transmission Date: 20140414
  Serious: Yes (Other)
  Sender: FDA-Public Use
  Company Number: US-ALEXION PHARMACEUTICALS INC.-A201300866

PATIENT
  Age: 58 Year
  Sex: Female
  Weight: 86.2 kg

DRUGS (5)
  1. SOLIRIS 300MG [Suspect]
     Dosage: 900 MG, Q2W
     Route: 042
  2. LOVENOX [Concomitant]
     Dosage: BID
  3. FOLIC ACID [Concomitant]
     Dosage: 3 MG, QD
  4. VITAMIN B6 [Concomitant]
     Dosage: 50 MG, QD
  5. VITAMIN B12 [Concomitant]
     Dosage: 50 MG, QD

REACTIONS (1)
  - Invasive ductal breast carcinoma [Not Recovered/Not Resolved]
